FAERS Safety Report 18414318 (Version 1)
Quarter: 2020Q4

REPORT INFORMATION
  Report Type: Spontaneous
  Country: FR (occurrence: FR)
  Receive Date: 20201022
  Receipt Date: 20201022
  Transmission Date: 20210114
  Serious: Yes (Hospitalization)
  Sender: FDA-Public Use
  Company Number: FR-ACCORD-205897

PATIENT
  Age: 58 Year
  Sex: Male
  Weight: 48.6 kg

DRUGS (3)
  1. ERBITUX [Suspect]
     Active Substance: CETUXIMAB
     Indication: SQUAMOUS CELL CARCINOMA OF THE HYPOPHARYNX
     Route: 042
     Dates: start: 20200812
  2. FLUOROURACIL ACCORD [Suspect]
     Active Substance: FLUOROURACIL
     Indication: SQUAMOUS CELL CARCINOMA OF THE HYPOPHARYNX
     Route: 042
     Dates: start: 20200812
  3. CARBOPLATIN ACCORD [Suspect]
     Active Substance: CARBOPLATIN
     Indication: SQUAMOUS CELL CARCINOMA OF THE HYPOPHARYNX
     Route: 042
     Dates: start: 20200812

REACTIONS (1)
  - Pancytopenia [Unknown]

NARRATIVE: CASE EVENT DATE: 20200906
